FAERS Safety Report 14769634 (Version 5)
Quarter: 2018Q4

REPORT INFORMATION
  Report Type: Spontaneous
  Country: US (occurrence: US)
  Receive Date: 20180417
  Receipt Date: 20181120
  Transmission Date: 20190204
  Serious: No
  Sender: FDA-Public Use
  Company Number: US-PFIZER INC-2018155185

PATIENT
  Age: 68 Year
  Sex: Male

DRUGS (1)
  1. SUTENT [Suspect]
     Active Substance: SUNITINIB MALATE
     Indication: LARYNGEAL CANCER
     Dosage: 37.5 MG, CYCLIC (DAILY FOR 14 DAYS/ 7 DAYS OFF)
     Route: 048
     Dates: start: 20180208

REACTIONS (6)
  - Paraesthesia [Unknown]
  - Lethargy [Unknown]
  - Product use in unapproved indication [Unknown]
  - Skin discolouration [Unknown]
  - Nausea [Unknown]
  - Fatigue [Unknown]

NARRATIVE: CASE EVENT DATE: 20180208
